FAERS Safety Report 10688080 (Version 1)
Quarter: 2015Q1

REPORT INFORMATION
  Report Type: Report from Study
  Country: IT (occurrence: IT)
  Receive Date: 20150102
  Receipt Date: 20150102
  Transmission Date: 20150720
  Serious: Yes (Other)
  Sender: FDA-Public Use
  Company Number: IT-ALEXION PHARMACEUTICALS INC.-A201404869

PATIENT

DRUGS (1)
  1. SOLIRIS [Suspect]
     Active Substance: ECULIZUMAB
     Indication: PAROXYSMAL NOCTURNAL HAEMOGLOBINURIA
     Dosage: EVERY 12TH OR 13TH DAY
     Route: 042
     Dates: start: 200804

REACTIONS (3)
  - Fatigue [Unknown]
  - Iron overload [Unknown]
  - Inappropriate schedule of drug administration [Unknown]
